FAERS Safety Report 20754191 (Version 3)
Quarter: 2022Q4

REPORT INFORMATION
  Report Type: Spontaneous
  Country: JP (occurrence: JP)
  Receive Date: 20220426
  Receipt Date: 20221110
  Transmission Date: 20230113
  Serious: Yes (Other)
  Sender: FDA-Public Use
  Company Number: JP-BRISTOL-MYERS SQUIBB COMPANY-2022-027203

PATIENT
  Age: 73 Year
  Sex: Female

DRUGS (4)
  1. IPILIMUMAB [Suspect]
     Active Substance: IPILIMUMAB
     Indication: Malignant melanoma
     Route: 041
  2. NIVOLUMAB [Suspect]
     Active Substance: NIVOLUMAB
     Indication: Malignant melanoma
     Route: 041
  3. ENCORAFENIB [Suspect]
     Active Substance: ENCORAFENIB
     Indication: Malignant melanoma
     Route: 048
     Dates: start: 202108, end: 20220421
  4. BINIMETINIB [Suspect]
     Active Substance: BINIMETINIB
     Indication: Malignant melanoma
     Route: 048
     Dates: start: 202108, end: 20220421

REACTIONS (5)
  - Melaena [Not Recovered/Not Resolved]
  - Anaemia [Not Recovered/Not Resolved]
  - Malignant neoplasm progression [Recovering/Resolving]
  - Intestinal ulcer [Not Recovered/Not Resolved]
  - Haematochezia [Unknown]

NARRATIVE: CASE EVENT DATE: 20220301
